FAERS Safety Report 6674733-0 (Version None)
Quarter: 2010Q2

REPORT INFORMATION
  Report Type: 
  Country: None (occurrence: None)
  Receive Date: 20100409
  Receipt Date: 20100330
  Transmission Date: 20101027
  Serious: Yes (Other)
  Sender: FDA-Public Use
  Company Number: SG-PFIZER INC-2010043089

PATIENT
  Age: 73 Year
  Sex: Female

DRUGS (4)
  1. ADRIAMYCIN PFS [Suspect]
     Indication: HODGKIN'S DISEASE STAGE II
  2. BLEOMYCIN SULFATE [Suspect]
     Indication: HODGKIN'S DISEASE STAGE II
  3. VINBLASTINE [Suspect]
     Indication: HODGKIN'S DISEASE STAGE II
  4. DACARBAZINE [Suspect]
     Indication: HODGKIN'S DISEASE STAGE II

REACTIONS (2)
  - DIFFUSE LARGE B-CELL LYMPHOMA [None]
  - NEOPLASM MALIGNANT [None]
